FAERS Safety Report 18779085 (Version 2)
Quarter: 2022Q3

REPORT INFORMATION
  Report Type: Other
  Country: AU (occurrence: AU)
  Receive Date: 20210125
  Receipt Date: 20220728
  Transmission Date: 20221026
  Serious: Yes (Other)
  Sender: FDA-Public Use
  Company Number: AU-TOLMAR, INC.-21AU024904

PATIENT
  Sex: Male

DRUGS (1)
  1. ELIGARD [Suspect]
     Active Substance: LEUPROLIDE ACETATE
     Indication: Prostate cancer
     Dosage: 45 MG, Q 6 MONTH

REACTIONS (2)
  - Prostatic specific antigen increased [Not Recovered/Not Resolved]
  - Hot flush [Not Recovered/Not Resolved]
